FAERS Safety Report 20100177 (Version 2)
Quarter: 2021Q4

REPORT INFORMATION
  Report Type: Report from Study
  Country: JP (occurrence: JP)
  Receive Date: 20211123
  Receipt Date: 20211203
  Transmission Date: 20220303
  Serious: Yes (Death, Other)
  Sender: FDA-Public Use
  Company Number: JP-CELLTRION INC.-2021JP005468

PATIENT

DRUGS (30)
  1. INVESTIGATIONAL BIOSIMILARS [Suspect]
     Active Substance: INVESTIGATIONAL BIOSIMILARS
     Indication: HER2 positive gastric cancer
     Dosage: 450 MG, QD
     Route: 041
     Dates: start: 20201130, end: 20201130
  2. INVESTIGATIONAL BIOSIMILARS [Suspect]
     Active Substance: INVESTIGATIONAL BIOSIMILARS
     Dosage: 350 MG, QD
     Route: 041
     Dates: start: 20201221, end: 20201221
  3. INVESTIGATIONAL BIOSIMILARS [Suspect]
     Active Substance: INVESTIGATIONAL BIOSIMILARS
     Dosage: 350 MG, QD
     Route: 041
     Dates: start: 20210113, end: 20210113
  4. INVESTIGATIONAL BIOSIMILARS [Suspect]
     Active Substance: INVESTIGATIONAL BIOSIMILARS
     Dosage: 350 MG, QD
     Route: 041
     Dates: start: 20210201, end: 20210201
  5. INVESTIGATIONAL BIOSIMILARS [Suspect]
     Active Substance: INVESTIGATIONAL BIOSIMILARS
     Dosage: 350 MG, QD
     Route: 041
     Dates: start: 20210222, end: 20210222
  6. INVESTIGATIONAL BIOSIMILARS [Suspect]
     Active Substance: INVESTIGATIONAL BIOSIMILARS
     Dosage: 350 MG, QD
     Route: 041
     Dates: start: 20210315, end: 20210315
  7. OXALIPLATIN [Suspect]
     Active Substance: OXALIPLATIN
     Indication: HER2 positive gastric cancer
     Dosage: 200 MILLIGRAM, QD
     Route: 041
     Dates: start: 20201130, end: 20201130
  8. OXALIPLATIN [Suspect]
     Active Substance: OXALIPLATIN
     Dosage: 200 MILLIGRAM, QD
     Route: 041
     Dates: start: 20201221, end: 20201221
  9. OXALIPLATIN [Suspect]
     Active Substance: OXALIPLATIN
     Dosage: 200 MILLIGRAM, QD
     Route: 041
     Dates: start: 20210113, end: 20210113
  10. OXALIPLATIN [Suspect]
     Active Substance: OXALIPLATIN
     Dosage: 200 MILLIGRAM, QD
     Route: 041
     Dates: start: 20210201, end: 20210201
  11. OXALIPLATIN [Suspect]
     Active Substance: OXALIPLATIN
     Dosage: 150 MILLIGRAM, QD
     Route: 041
     Dates: start: 20210222, end: 20210222
  12. OXALIPLATIN [Suspect]
     Active Substance: OXALIPLATIN
     Dosage: 150 MILLIGRAM, QD
     Route: 041
     Dates: start: 20210315, end: 20210315
  13. CAPECITABINE [Suspect]
     Active Substance: CAPECITABINE
     Indication: HER2 positive gastric cancer
     Dosage: 3000 MILLIGRAM, QD
     Route: 048
     Dates: start: 20201130, end: 20201214
  14. CAPECITABINE [Suspect]
     Active Substance: CAPECITABINE
     Dosage: 3000 MILLIGRAM, QD
     Route: 048
     Dates: start: 20201221, end: 20210104
  15. CAPECITABINE [Suspect]
     Active Substance: CAPECITABINE
     Dosage: 3000 MILLIGRAM, QD
     Route: 048
     Dates: start: 20210113, end: 20210127
  16. CAPECITABINE [Suspect]
     Active Substance: CAPECITABINE
     Dosage: 3000 MILLIGRAM, QD
     Route: 048
     Dates: start: 20210201, end: 20210215
  17. CAPECITABINE [Suspect]
     Active Substance: CAPECITABINE
     Dosage: 2400 MILLIGRAM, QD
     Route: 048
     Dates: start: 20210222, end: 20210308
  18. CAPECITABINE [Suspect]
     Active Substance: CAPECITABINE
     Dosage: 2400 MILLIGRAM, QD
     Route: 048
     Dates: start: 20210315, end: 20210329
  19. ALOXI [Concomitant]
     Active Substance: PALONOSETRON HYDROCHLORIDE
     Indication: Prophylaxis of nausea and vomiting
     Dosage: UNK
     Dates: end: 20210315
  20. DEXAMETHASONE SODIUM PHOSPHATE [Concomitant]
     Active Substance: DEXAMETHASONE SODIUM PHOSPHATE
     Indication: Prophylaxis of nausea and vomiting
     Dosage: UNK
     Dates: end: 20210315
  21. DECADRON [Concomitant]
     Active Substance: DEXAMETHASONE
     Indication: Prophylaxis of nausea and vomiting
     Dosage: UNK
     Dates: end: 20210318
  22. AMLODIPINE [Concomitant]
     Active Substance: AMLODIPINE BESYLATE
     Indication: Hypertension
     Dosage: UNK
  23. VONOPRAZAN FUMARATE [Concomitant]
     Active Substance: VONOPRAZAN FUMARATE
     Indication: Prophylaxis
     Dosage: UNK
  24. VALSARTAN OD [Concomitant]
     Indication: Hypertension
     Dosage: UNK
  25. ECABET SODIUM [Concomitant]
     Active Substance: ECABET SODIUM
     Indication: Prophylaxis
     Dosage: UNK
  26. RIPASUDIL HYDROCHLORIDE DIHYDRATE [Concomitant]
     Active Substance: RIPASUDIL HYDROCHLORIDE DIHYDRATE
     Indication: Open angle glaucoma
     Dosage: UNK
  27. ALPHAGAN P [Concomitant]
     Active Substance: BRIMONIDINE TARTRATE
     Indication: Open angle glaucoma
     Dosage: UNK
  28. TAPROS MINI [Concomitant]
     Indication: Open angle glaucoma
     Dosage: UNK
  29. COSOPT MINI [Concomitant]
     Indication: Open angle glaucoma
     Dosage: UNK
  30. CHONDROITIN SULFATE (BOVINE) [Concomitant]
     Active Substance: CHONDROITIN SULFATE (BOVINE)
     Indication: Prophylaxis
     Dosage: UNK
     Dates: start: 20201130

REACTIONS (14)
  - HER2 positive gastric cancer [Fatal]
  - Ascites [Recovering/Resolving]
  - Hypoalbuminaemia [Recovered/Resolved]
  - Blood bilirubin increased [Recovered/Resolved]
  - Taste disorder [Recovering/Resolving]
  - Peripheral sensory neuropathy [Not Recovered/Not Resolved]
  - Chills [Recovered/Resolved]
  - Decreased appetite [Recovering/Resolving]
  - Oedema peripheral [Recovering/Resolving]
  - Palmar-plantar erythrodysaesthesia syndrome [Not Recovered/Not Resolved]
  - Upper respiratory tract infection [Recovering/Resolving]
  - Skin infection [Recovering/Resolving]
  - Product use issue [Unknown]
  - Underdose [Unknown]

NARRATIVE: CASE EVENT DATE: 20201130
